FAERS Safety Report 22132348 (Version 11)
Quarter: 2025Q4

REPORT INFORMATION
  Report Type: Report from Study
  Country: CA (occurrence: CA)
  Receive Date: 20230323
  Receipt Date: 20251226
  Transmission Date: 20260118
  Serious: Yes (Hospitalization, Other)
  Sender: TAKEDA
  Company Number: CA-TAKEDA-2023TUS029094

PATIENT
  Age: 56 Year
  Sex: Male

DRUGS (23)
  1. VEDOLIZUMAB [Suspect]
     Active Substance: VEDOLIZUMAB
     Indication: Crohn^s disease
     Dosage: 300 MILLIGRAM
  2. VEDOLIZUMAB [Suspect]
     Active Substance: VEDOLIZUMAB
     Dosage: 300 MILLIGRAM, Q4WEEKS
     Dates: start: 20230720
  3. VEDOLIZUMAB [Suspect]
     Active Substance: VEDOLIZUMAB
     Indication: Crohn^s disease
     Dosage: 108 MILLIGRAM, 1/WEEK
     Dates: start: 20251105
  4. MAGNESIUM GLUCONATE [Concomitant]
     Active Substance: MAGNESIUM GLUCONATE
     Dosage: UNK
  5. FERROUS SULFATE [Concomitant]
     Active Substance: FERROUS SULFATE
     Dosage: UNK
  6. RIFAXIMIN [Concomitant]
     Active Substance: RIFAXIMIN
     Dosage: UNK
  7. ASPIRIN [Concomitant]
     Active Substance: ASPIRIN
     Dosage: UNK
  8. URSODIOL [Concomitant]
     Active Substance: URSODIOL
     Dosage: UNK
  9. PREDNISONE [Concomitant]
     Active Substance: PREDNISONE
     Dosage: 15 MILLIGRAM
  10. TACROLIMUS [Concomitant]
     Active Substance: TACROLIMUS
     Dosage: UNK
  11. NEXIUM [Concomitant]
     Active Substance: ESOMEPRAZOLE MAGNESIUM
     Dosage: UNK
  12. ALENDRONATE [Concomitant]
     Active Substance: ALENDRONATE SODIUM
     Dosage: UNK
  13. CALCIUM [Concomitant]
     Active Substance: CALCIUM
     Dosage: UNK
  14. VALTREX [Concomitant]
     Active Substance: VALACYCLOVIR HYDROCHLORIDE
     Dosage: 500 MILLIGRAM
  15. URSO [Concomitant]
     Active Substance: URSODIOL
     Dosage: 500 MILLIGRAM
  16. ATOVAQUONE [Concomitant]
     Active Substance: ATOVAQUONE
     Dosage: 10 MILLILITER
  17. NORVASC [Concomitant]
     Active Substance: AMLODIPINE BESYLATE
     Dosage: 10 MILLIGRAM
  18. TACROLIMUS [Concomitant]
     Active Substance: TACROLIMUS
     Dosage: 7 MILLIGRAM
  19. VITAMIN D [Concomitant]
     Active Substance: VITAMIN D NOS
     Dosage: UNK
  20. ASPIRIN [Concomitant]
     Active Substance: ASPIRIN
     Dosage: UNK
  21. CORTISONE [Concomitant]
     Active Substance: CORTISONE
     Dosage: UNK
  22. METOPROLOL [Concomitant]
     Active Substance: METOPROLOL
     Dosage: UNK
  23. IRON [Concomitant]
     Active Substance: IRON
     Dosage: UNK

REACTIONS (12)
  - Liver abscess [Unknown]
  - Blood pressure decreased [Unknown]
  - Post procedural bile leak [Unknown]
  - Drain site complication [Recovering/Resolving]
  - Discomfort [Recovering/Resolving]
  - Chills [Recovering/Resolving]
  - Blood creatinine increased [Recovering/Resolving]
  - Blood alkaline phosphatase increased [Recovering/Resolving]
  - Hepatic enzyme increased [Recovering/Resolving]
  - Liver transplant rejection [Recovering/Resolving]
  - Off label use [Unknown]
  - Injection site extravasation [Recovering/Resolving]

NARRATIVE: CASE EVENT DATE: 20230720
